FAERS Safety Report 8267850-5 (Version None)
Quarter: 2012Q2

REPORT INFORMATION
  Report Type: 
  Country: None (occurrence: None)
  Receive Date: 20120404
  Receipt Date: 20120322
  Transmission Date: 20120825
  Serious: Yes (Hospitalization)
  Sender: FDA-Public Use
  Company Number: 2012MA004132

PATIENT
  Age: 71 Year
  Sex: Female

DRUGS (12)
  1. GLIMEPIRIDE [Concomitant]
  2. DIAZEPAM [Concomitant]
  3. PANTOPRAZOLE [Concomitant]
  4. IMUREX [Concomitant]
  5. PANTOPRAZOLE [Concomitant]
  6. BAYOTENSIN [Concomitant]
  7. DIPYRONE TAB [Concomitant]
  8. LOSARTAN POTASSIUM [Suspect]
     Indication: PRODUCT USED FOR UNKNOWN INDICATION
  9. DIGITOXIN TAB [Concomitant]
  10. LUTEIN [Concomitant]
  11. METFORMIN HYDROCHLORIDE [Concomitant]
  12. ALISKIREN [Concomitant]

REACTIONS (6)
  - ARTHRALGIA [None]
  - HEADACHE [None]
  - FAECES HARD [None]
  - HYPERTENSION [None]
  - VASCULAR CALCIFICATION [None]
  - RESTLESSNESS [None]
